FAERS Safety Report 7315945-2 (Version None)
Quarter: 2011Q1

REPORT INFORMATION
  Report Type: 
  Country: None (occurrence: None)
  Receive Date: 20110225
  Receipt Date: 20110218
  Transmission Date: 20110831
  Serious: Yes (Hospitalization)
  Sender: FDA-Public Use
  Company Number: GB-TEVA-268315ISR

PATIENT
  Sex: Male
  Weight: 2.4 kg

DRUGS (3)
  1. OLANZAPINE [Suspect]
  2. MIRTAZAPINE [Suspect]
     Route: 064
  3. VENLAFAXINE [Suspect]
     Route: 064

REACTIONS (4)
  - FEEDING DISORDER NEONATAL [None]
  - SEPSIS [None]
  - DRUG WITHDRAWAL SYNDROME NEONATAL [None]
  - RESTLESSNESS [None]
